FAERS Safety Report 9866257 (Version 2)
Quarter: 2014Q1

REPORT INFORMATION
  Report Type: Spontaneous
  Country: US (occurrence: US)
  Receive Date: 20140203
  Receipt Date: 20140203
  Transmission Date: 20141002
  Serious: No
  Sender: FDA-Public Use
  Company Number: US-ALLERGAN-1317884US

PATIENT
  Sex: Male

DRUGS (2)
  1. RESTASIS [Suspect]
     Indication: DRY EYE
     Dosage: 4 GTT AND AT OTHER TIMES 2 GTT, BID
     Route: 047
  2. 15-20 UNSPECIFIED VITAMINS [Concomitant]
     Dosage: UNK, QD

REACTIONS (7)
  - Eye haemorrhage [Recovered/Resolved]
  - Dreamy state [Recovered/Resolved]
  - Speech disorder [Recovered/Resolved]
  - Dysarthria [Recovered/Resolved]
  - Sensory disturbance [Recovered/Resolved]
  - Incorrect dose administered [Unknown]
  - Eye pruritus [Unknown]
